FAERS Safety Report 24784337 (Version 1)
Quarter: 2024Q4

REPORT INFORMATION
  Report Type: Report from Study
  Country: US (occurrence: US)
  Receive Date: 20241227
  Receipt Date: 20241227
  Transmission Date: 20250115
  Serious: No
  Sender: Day One Biopharmaceuticals
  Company Number: US-Day One Biopharmaceuticals Inc.-2024US001326

PATIENT

DRUGS (2)
  1. OJEMDA [Suspect]
     Active Substance: TOVORAFENIB
     Indication: Brain neoplasm malignant
     Dosage: 400 MILLIGRAM
     Route: 065
     Dates: start: 2024
  2. OJEMDA [Suspect]
     Active Substance: TOVORAFENIB
     Dosage: 500 MILLIGRAM
     Route: 065
     Dates: start: 202411

REACTIONS (1)
  - Accidental underdose [Recovered/Resolved]
